FAERS Safety Report 8314448-6 (Version None)
Quarter: 2012Q2

REPORT INFORMATION
  Report Type: 
  Country: None (occurrence: None)
  Receive Date: 20120426
  Receipt Date: 20120425
  Transmission Date: 20120825
  Serious: Yes (Death)
  Sender: FDA-Public Use
  Company Number: CN-ROCHE-1060887

PATIENT
  Age: 88 Year
  Sex: Male

DRUGS (2)
  1. MABTHERA [Suspect]
     Indication: ACQUIRED HAEMOPHILIA
  2. GLUCOCORTICOIDS [Suspect]
     Indication: ACQUIRED HAEMOPHILIA

REACTIONS (1)
  - INFECTION [None]
